FAERS Safety Report 9109712 (Version 1)
Quarter: 2013Q1

REPORT INFORMATION
  Report Type: Spontaneous
  Country: US (occurrence: US)
  Receive Date: 20130222
  Receipt Date: 20130222
  Transmission Date: 20140127
  Serious: No
  Sender: FDA-Public Use
  Company Number: US-ASTRAZENECA-2002UW00168

PATIENT
  Age: 59 Year
  Sex: Female
  Weight: 53.5 kg

DRUGS (7)
  1. NEXIUM [Suspect]
     Indication: GASTROOESOPHAGEAL REFLUX DISEASE
     Route: 048
     Dates: start: 20020104
  2. NEXIUM [Suspect]
     Indication: GASTROOESOPHAGEAL REFLUX DISEASE
     Route: 048
  3. NEXIUM [Suspect]
     Indication: GASTROOESOPHAGEAL REFLUX DISEASE
     Route: 048
  4. SYNTHROID [Concomitant]
     Indication: THYROID DISORDER
  5. BENTYL [Concomitant]
     Indication: ABDOMINAL PAIN UPPER
  6. LORTAB [Concomitant]
     Indication: BACK PAIN
  7. XALATAN [Concomitant]
     Indication: GLAUCOMA

REACTIONS (6)
  - Glaucoma [Unknown]
  - Impaired work ability [Unknown]
  - Chest pain [Unknown]
  - Weight decreased [Unknown]
  - Insomnia [Not Recovered/Not Resolved]
  - Drug dose omission [Unknown]
